FAERS Safety Report 8465183-5 (Version None)
Quarter: 2012Q2

REPORT INFORMATION
  Report Type: 
  Country: None (occurrence: None)
  Receive Date: 20120626
  Receipt Date: 20120619
  Transmission Date: 20120825
  Serious: Yes (Death, Life-Threatening, Hospitalization)
  Sender: FDA-Public Use
  Company Number: CA-JNJFOC-20110813415

PATIENT
  Sex: Male
  Weight: 107.5 kg

DRUGS (10)
  1. PRAVASTATIN [Concomitant]
     Indication: HYPERLIPIDAEMIA
     Route: 048
     Dates: start: 20080320
  2. RAMIPRIL [Concomitant]
     Indication: HYPERTENSION
     Route: 048
     Dates: start: 20080811
  3. CLONAZEPAM [Concomitant]
     Indication: DEPRESSION
     Route: 048
     Dates: start: 19950101
  4. IRON [Concomitant]
     Indication: ANAEMIA
     Route: 048
     Dates: start: 20110829
  5. LEVOTHYROXINE SODIUM [Concomitant]
     Indication: HYPOTHYROIDISM
     Route: 048
     Dates: start: 20090324
  6. FLUOXETINE [Concomitant]
     Indication: DEPRESSION
     Route: 048
     Dates: start: 19950101
  7. STELARA [Suspect]
     Indication: PSORIASIS
     Route: 058
     Dates: start: 20090528, end: 20120108
  8. ALLOPURINOL [Concomitant]
     Indication: GOUT
     Route: 048
     Dates: start: 20090324
  9. HYDROCHLOROTHIAZIDE [Concomitant]
     Indication: HYPERTENSION
     Route: 048
     Dates: start: 20101014
  10. CETAPHIL UNSPECIFIED [Concomitant]
     Indication: PSORIASIS
     Route: 061
     Dates: start: 20080101

REACTIONS (2)
  - MULTI-ORGAN FAILURE [None]
  - ANAEMIA [None]
